FAERS Safety Report 6557859-1 (Version None)
Quarter: 2010Q1

REPORT INFORMATION
  Report Type: 
  Country: None (occurrence: None)
  Receive Date: 20100125
  Receipt Date: 20100105
  Transmission Date: 20100710
  Serious: No
  Sender: FDA-Public Use
  Company Number: 2010-00009

PATIENT
  Age: 63 Year
  Sex: Female
  Weight: 74.8435 kg

DRUGS (11)
  1. COLD REMEDY RAPIDMELTS [Suspect]
     Dosage: QID FOR 3 DAYS
     Dates: start: 20091231, end: 20100103
  2. COLD REMEDY ORAL MIST [Suspect]
     Dosage: QID FOR 1 DAY
     Dates: start: 20100103, end: 20100104
  3. WELCHOL [Concomitant]
  4. PLAVIX [Concomitant]
  5. LEXAPRO [Concomitant]
  6. SEREVENT [Concomitant]
  7. FLOVENT [Concomitant]
  8. SPIRIVA [Concomitant]
  9. BENICAR [Concomitant]
  10. SINGULAIR [Concomitant]
  11. AMLODIPINE [Concomitant]

REACTIONS (1)
  - AGEUSIA [None]
